FAERS Safety Report 23637475 (Version 1)
Quarter: 2024Q1

REPORT INFORMATION
  Report Type: Report from Study
  Country: AR (occurrence: AR)
  Receive Date: 20240315
  Receipt Date: 20240315
  Transmission Date: 20240410
  Serious: Yes (Other)
  Sender: FDA-Public Use
  Company Number: AR-SA-SAC20240119000337

PATIENT
  Age: 90 Year
  Sex: Male
  Weight: 87 kg

DRUGS (1)
  1. IMIGLUCERASE [Suspect]
     Active Substance: IMIGLUCERASE
     Indication: Gaucher^s disease
     Dosage: 400 IU, QOW (400 IU PER 11 VIALS DILUTED IN 200 ML OF PHYSIOLOGICAL SOLUTION TO BE ADMINISTERED OVER
     Route: 042
     Dates: start: 19790620

REACTIONS (4)
  - Coronary artery stenosis [Recovered/Resolved]
  - Arteriosclerosis coronary artery [Unknown]
  - Post procedural haematoma [Recovered/Resolved]
  - Procedural pain [Recovered/Resolved]

NARRATIVE: CASE EVENT DATE: 20240111
